FAERS Safety Report 8617147-6 (Version None)
Quarter: 2012Q3

REPORT INFORMATION
  Report Type: 
  Country: None (occurrence: None)
  Receive Date: 20120823
  Receipt Date: 20120821
  Transmission Date: 20120928
  Serious: No
  Sender: FDA-Public Use
  Company Number: US-PFIZER INC-2012109064

PATIENT
  Sex: Female

DRUGS (1)
  1. LYRICA [Suspect]
     Dosage: UNK
     Dates: start: 20111201

REACTIONS (4)
  - PAIN [None]
  - BONE PAIN [None]
  - INTENTIONAL DRUG MISUSE [None]
  - MYALGIA [None]
